FAERS Safety Report 10885267 (Version 2)
Quarter: 2015Q2

REPORT INFORMATION
  Report Type: Report from Study
  Country: BE (occurrence: BE)
  Receive Date: 20150304
  Receipt Date: 20150603
  Transmission Date: 20150821
  Serious: Yes (Hospitalization, Other)
  Sender: FDA-Public Use
  Company Number: BE-ASTRAZENECA-2015SE17984

PATIENT
  Age: 83 Year
  Sex: Female

DRUGS (3)
  1. ACETYLSALICYLIC ACID [Suspect]
     Active Substance: ASPIRIN
     Indication: THROMBOSIS PROPHYLAXIS
     Route: 048
     Dates: start: 20140209
  2. TICAGRELOR [Suspect]
     Active Substance: TICAGRELOR
     Indication: THROMBOSIS PROPHYLAXIS
     Route: 048
     Dates: start: 20140211, end: 20150203
  3. FLUDEX [Concomitant]
     Active Substance: INDAPAMIDE
     Indication: DIURETIC THERAPY
     Dates: end: 20150205

REACTIONS (2)
  - Hypokalaemia [Recovering/Resolving]
  - Pulmonary thrombosis [Recovered/Resolved with Sequelae]

NARRATIVE: CASE EVENT DATE: 20150203
